FAERS Safety Report 19768498 (Version 1)
Quarter: 2021Q3

REPORT INFORMATION
  Report Type: Spontaneous
  Country: JP (occurrence: JP)
  Receive Date: 20210830
  Receipt Date: 20210830
  Transmission Date: 20211014
  Serious: Yes (Death)
  Sender: FDA-Public Use
  Company Number: JP-PRINSTON PHARMACEUTICAL INC.-2021PRN00306

PATIENT
  Sex: Male
  Weight: 46 kg

DRUGS (10)
  1. ZONISAMIDE. [Concomitant]
     Active Substance: ZONISAMIDE
     Route: 065
  2. LEVODOPA [Concomitant]
     Active Substance: LEVODOPA
     Route: 065
  3. ENTACAPONE. [Concomitant]
     Active Substance: ENTACAPONE
     Route: 065
  4. MAGNESIUM OXIDE. [Concomitant]
     Active Substance: MAGNESIUM OXIDE
     Route: 065
  5. SILODOSIN. [Concomitant]
     Active Substance: SILODOSIN
     Route: 065
  6. AMANTADINE. [Concomitant]
     Active Substance: AMANTADINE HYDROCHLORIDE
     Route: 048
  7. NITRAZEPAM [Concomitant]
     Active Substance: NITRAZEPAM
     Route: 065
  8. TOCOPHEROL ACETATE [Concomitant]
     Active Substance: .ALPHA.-TOCOPHEROL ACETATE
     Route: 065
  9. ROPINIROLE. [Suspect]
     Active Substance: ROPINIROLE
     Route: 065
  10. DUTASTERIDE. [Concomitant]
     Active Substance: DUTASTERIDE
     Route: 065

REACTIONS (3)
  - Arrhythmia [Fatal]
  - Toxicity to various agents [Fatal]
  - Shock [Fatal]
